FAERS Safety Report 4302413-5 (Version None)
Quarter: 2004Q1

REPORT INFORMATION
  Report Type: 
  Country: None (occurrence: None)
  Receive Date: 20040220
  Receipt Date: 20040127
  Transmission Date: 20041129
  Serious: Yes (Hospitalization)
  Sender: FDA-Public Use
  Company Number: F01200301238

PATIENT
  Age: 70 Year
  Sex: Male

DRUGS (18)
  1. (OXALIPLATIN) - SOLUTION - 85 MG/M2 [Suspect]
     Indication: COLORECTAL CANCER
     Dosage: 85 MG/M2 Q2W, 400 MG/M2 BOLUS THEN 2400 MG/M2 AS; INTRAVENOUS NOS (2 HOURS - TIME TO ONSET: 2 DAYS)
     Route: 042
     Dates: start: 20031015, end: 20031015
  2. FLUOROURACIL [Suspect]
     Dosage: 46 HOURS INFUSION Q2W, INTRAVENUS NOS (3 DAYS - TIME T ONSET: 2 DAYS)
     Route: 042
     Dates: start: 20031015, end: 20031017
  3. LEUCOVORIN CALCIUM [Suspect]
     Dosage: 350 MG Q2W; INTRAVENOUS NOS (2 HOURS - TIME ONSET: 2 DAYS)
     Route: 042
     Dates: start: 20031015, end: 20031015
  4. ALBUTEROL [Concomitant]
  5. DOCUSATE NA (DOCUSATE SODIUM) [Concomitant]
  6. FLUCONAZOLE [Concomitant]
  7. LEVOFLOXACIN [Concomitant]
  8. MEGESTROL ACETATE [Concomitant]
  9. PROCHLORPERAZINE MALEATE [Concomitant]
  10. SENNOSIDES (SENNA) [Concomitant]
  11. OXYCODONE HCL [Concomitant]
  12. OXYCONTIN [Concomitant]
  13. OXYBUTYNIN [Concomitant]
  14. DIPIVEFRIN (DIPIVEFRINE) [Concomitant]
  15. DORZOLAMIDE [Concomitant]
  16. MORPHINE SULFATE [Concomitant]
  17. DEXAMETHASONE [Concomitant]
  18. NAPROXEN [Concomitant]

REACTIONS (14)
  - ARTERIAL STENOSIS [None]
  - ARTHRALGIA [None]
  - ASTHENIA [None]
  - BLOOD UREA INCREASED [None]
  - CEREBRAL ATROPHY [None]
  - DIPLOPIA [None]
  - DYSPNOEA [None]
  - EXTRASKELETAL OSSIFICATION [None]
  - HAEMOGLOBIN DECREASED [None]
  - MIGRATION OF IMPLANT [None]
  - NAUSEA [None]
  - OPEN ANGLE GLAUCOMA [None]
  - ROTATOR CUFF SYNDROME [None]
  - VISION BLURRED [None]
